FAERS Safety Report 13789315 (Version 2)
Quarter: 2017Q3

REPORT INFORMATION
  Report Type: Spontaneous
  Country: IL (occurrence: IL)
  Receive Date: 20170725
  Receipt Date: 20170919
  Transmission Date: 20171127
  Serious: Yes (Life-Threatening)
  Sender: FDA-Public Use
  Company Number: IL-NOVOPROD-554506

PATIENT
  Age: 63 Year
  Sex: Male
  Weight: 71 kg

DRUGS (1)
  1. VICTOZA [Suspect]
     Active Substance: LIRAGLUTIDE
     Indication: DIABETES MELLITUS
     Dosage: UNK
     Route: 065
     Dates: start: 201611

REACTIONS (3)
  - Pancreatic carcinoma [Unknown]
  - Metastases to lung [Unknown]
  - Hepatic neoplasm [Unknown]

NARRATIVE: CASE EVENT DATE: 20170710
